FAERS Safety Report 4706166-8 (Version None)
Quarter: 2005Q2

REPORT INFORMATION
  Report Type: 
  Country: None (occurrence: None)
  Receive Date: 20050629
  Receipt Date: 20050310
  Transmission Date: 20051028
  Serious: No
  Sender: FDA-Public Use
  Company Number: 04P-163-0282538-00

PATIENT
  Age: 67 Year
  Sex: Male

DRUGS (19)
  1. HUMIRA [Suspect]
     Indication: RHEUMATOID ARTHRITIS
     Dosage: 40 MG, 1 IN 2 WK, SUBCUTANEOUS
     Route: 058
     Dates: start: 20030917, end: 20040927
  2. HYDROXYCHLOROQUINE PHOPHATE [Concomitant]
  3. CITALOPRAM HYDROBROMIDE [Concomitant]
  4. ATORVASTATIN CALCIUM [Concomitant]
  5. RABEPRAZOLE SODIUM [Concomitant]
  6. CLONAZEPAM [Concomitant]
  7. MULTIVITAMIN [Concomitant]
  8. ASCORBIC ACID [Concomitant]
  9. TOCOPHEROL CONCENTRATE CAP [Concomitant]
  10. CRANBERRY [Concomitant]
  11. ASPIRIN [Concomitant]
  12. FISH OIL [Concomitant]
  13. ALLEGRA D 24 HOUR [Concomitant]
  14. ENALAPRIL MALEATE [Concomitant]
  15. OYSTER WITH VITAMIN D [Concomitant]
  16. CYANOCOBALAMIN [Concomitant]
  17. SALBUTAMOL [Concomitant]
  18. ORPHENADRINE CITRATE [Concomitant]
  19. FISH OIL [Concomitant]

REACTIONS (2)
  - ARTHRALGIA [None]
  - DEMYELINATING POLYNEUROPATHY [None]
